FAERS Safety Report 6012415-9 (Version None)
Quarter: 2008Q4

REPORT INFORMATION
  Report Type: 
  Country: None (occurrence: None)
  Receive Date: 20081218
  Receipt Date: 20081017
  Transmission Date: 20090506
  Serious: No
  Sender: FDA-Public Use
  Company Number: US-ASTRAZENECA-2008UW23134

PATIENT
  Age: 67 Year
  Sex: Female
  Weight: 83.9 kg

DRUGS (6)
  1. SYMBICORT [Suspect]
     Indication: ASTHMA
     Dosage: 160/4.5 MCG , 2 PUFFS TWICE DAILY
     Route: 055
     Dates: start: 20081003
  2. TOPROL-XL [Concomitant]
  3. CELEXA [Concomitant]
  4. CELEBREX [Concomitant]
  5. PREVACID [Concomitant]
  6. RESCUE INHALER [Concomitant]

REACTIONS (3)
  - DYSPHONIA [None]
  - HOT FLUSH [None]
  - THROAT IRRITATION [None]
